FAERS Safety Report 6426740-0 (Version None)
Quarter: 2009Q4

REPORT INFORMATION
  Report Type: 
  Country: None (occurrence: None)
  Receive Date: 20091029
  Receipt Date: 20091013
  Transmission Date: 20100525
  Serious: Yes (Hospitalization)
  Sender: FDA-Public Use
  Company Number: B0599511A

PATIENT
  Age: 55 Year
  Sex: Male

DRUGS (3)
  1. ROPINIROLE HYDROCHLORIDE [Suspect]
     Indication: PARKINSON'S DISEASE
  2. LEVODOPA (FORMULATION UNKNOWN) (LEVODOPA) [Suspect]
     Indication: PARKINSON'S DISEASE
  3. ENTACAPONE [Suspect]
     Indication: PARKINSON'S DISEASE

REACTIONS (6)
  - AXONAL NEUROPATHY [None]
  - HYPERTENSION [None]
  - HYPOREFLEXIA [None]
  - NEUROLEPTIC MALIGNANT SYNDROME [None]
  - QUADRIPARESIS [None]
  - WHITE BLOOD CELL COUNT INCREASED [None]
